FAERS Safety Report 5877038-0 (Version None)
Quarter: 2008Q3

REPORT INFORMATION
  Report Type: 
  Country: None (occurrence: None)
  Receive Date: 20080910
  Receipt Date: 20080902
  Transmission Date: 20090109
  Serious: Yes (Disabling)
  Sender: FDA-Public Use
  Company Number: PHEH2008US07339

PATIENT
  Sex: Male
  Weight: 68 kg

DRUGS (12)
  1. EXJADE [Suspect]
     Indication: SERUM FERRITIN INCREASED
     Dosage: 500 MG, BID
     Route: 048
     Dates: start: 20080609
  2. REVLIMID [Concomitant]
     Dosage: 10 MG, QOD
     Dates: start: 20080519
  3. REVLIMID [Concomitant]
     Dosage: 5 MG, QD
     Dates: start: 20080702
  4. TENORMIN [Concomitant]
  5. TRICOR [Concomitant]
  6. ZOCOR [Concomitant]
  7. LANOXIN [Concomitant]
  8. REGLAN [Concomitant]
  9. ARANESP [Concomitant]
  10. MULTI-VITAMINS [Concomitant]
  11. ASCORBIC ACID [Concomitant]
  12. FOLVITE [Concomitant]

REACTIONS (2)
  - DIARRHOEA [None]
  - WEIGHT DECREASED [None]
